FAERS Safety Report 8532475-0 (Version None)
Quarter: 2012Q3

REPORT INFORMATION
  Report Type: 
  Country: None (occurrence: None)
  Receive Date: 20120716
  Receipt Date: 20120716
  Transmission Date: 20120928
  Serious: Yes (Other)
  Sender: FDA-Public Use
  Company Number: None

PATIENT
  Age: 34 Year
  Sex: Female
  Weight: 65.7716 kg

DRUGS (1)
  1. MIRENA [Suspect]

REACTIONS (4)
  - URTICARIA [None]
  - DRUG HYPERSENSITIVITY [None]
  - DERMATITIS [None]
  - VULVOVAGINAL MYCOTIC INFECTION [None]
